FAERS Safety Report 8179275-1 (Version None)
Quarter: 2012Q1

REPORT INFORMATION
  Report Type: 
  Country: None (occurrence: None)
  Receive Date: 20120229
  Receipt Date: 20120229
  Transmission Date: 20120608
  Serious: Yes (Other)
  Sender: FDA-Public Use
  Company Number: None

PATIENT
  Age: 66 Year
  Sex: Male
  Weight: 79.3795 kg

DRUGS (2)
  1. PERPHENAZINE [Suspect]
     Indication: PSYCHOTIC DISORDER
     Dosage: 8-}6-}4-}0 ONCE A DAY BY MOUTH
     Route: 048
  2. SEROQUEL [Suspect]
     Indication: PSYCHOTIC DISORDER
     Dosage: 25MG -} 50 -} 75 -}100 ONCE A DAY BY MOUTH
     Route: 048
     Dates: start: 20101001, end: 20110201

REACTIONS (4)
  - THROAT TIGHTNESS [None]
  - TARDIVE DYSKINESIA [None]
  - MANIA [None]
  - DYSPHAGIA [None]
